FAERS Safety Report 12924433 (Version 1)
Quarter: 2016Q4

REPORT INFORMATION
  Report Type: Spontaneous
  Country: DK (occurrence: DK)
  Receive Date: 20161109
  Receipt Date: 20161109
  Transmission Date: 20170207
  Serious: Yes (Hospitalization)
  Sender: FDA-Public Use
  Company Number: DK-ROCHE-1852067

PATIENT
  Sex: Female
  Weight: 91 kg

DRUGS (7)
  1. XGEVA [Suspect]
     Active Substance: DENOSUMAB
     Indication: METASTASES TO BONE
     Dosage: DOSIS: SUBKUTAN INFUSION HVER 4. UGE, STYRKE: 120 MG
     Route: 058
     Dates: start: 20140701
  2. TAMOXIFEN [Concomitant]
     Active Substance: TAMOXIFEN
     Indication: BREAST CANCER
     Route: 065
  3. LETROZOLE. [Concomitant]
     Active Substance: LETROZOLE
  4. BONDRONAT [Suspect]
     Active Substance: IBANDRONIC ACID
     Indication: METASTASES TO BONE
     Dosage: DOSIS: 1 TABLET 1 GANG I ALT, STYRKE: 50 MG
     Route: 048
     Dates: start: 20110606, end: 20110606
  5. LOSARTAN. [Concomitant]
     Active Substance: LOSARTAN
     Indication: HYPERTENSION
     Route: 065
  6. AROMASIN [Concomitant]
     Active Substance: EXEMESTANE
  7. ZOMETA [Suspect]
     Active Substance: ZOLEDRONIC ACID
     Indication: METASTASES TO BONE
     Dosage: DOSIS: INFUSION HVER 3-4 UGE, STYRKE: 4 MG
     Route: 042
     Dates: start: 20110616, end: 201407

REACTIONS (3)
  - Oral pustule [Not Recovered/Not Resolved]
  - Osteonecrosis of jaw [Not Recovered/Not Resolved]
  - Exposed bone in jaw [Not Recovered/Not Resolved]
